FAERS Safety Report 7610334-5 (Version None)
Quarter: 2011Q3

REPORT INFORMATION
  Report Type: 
  Country: None (occurrence: None)
  Receive Date: 20110707
  Receipt Date: 20110624
  Transmission Date: 20111222
  Serious: Yes (Hospitalization)
  Sender: FDA-Public Use
  Company Number: 2009BI028377

PATIENT
  Age: 52 Year
  Sex: Male

DRUGS (8)
  1. UNCODEABLE ^UNCLASSIFIABLE^ [Concomitant]
  2. LOXONIN [Concomitant]
  3. POLARAMINE [Concomitant]
  4. RITUXIMAB (RITUXIMAB) [Suspect]
     Dates: start: 20090407, end: 20090414
  5. LEVOFLOXACIN [Concomitant]
  6. ZEVALIN [Suspect]
     Indication: FOLLICLE CENTRE LYMPHOMA, FOLLICULAR GRADE I, II, III STAGE II
     Dosage: 796 MBQ, 1X, IV
     Route: 042
     Dates: start: 20090407, end: 20090414
  7. ZEVALIN [Suspect]
     Indication: LYMPHOMA
     Dosage: 796 MBQ, 1X, IV
     Route: 042
     Dates: start: 20090407, end: 20090414
  8. LECICARBON [Concomitant]

REACTIONS (6)
  - NAUSEA [None]
  - PLATELET COUNT DECREASED [None]
  - ANAEMIA [None]
  - WHITE BLOOD CELL COUNT DECREASED [None]
  - BONE MARROW FAILURE [None]
  - NEUTROPHIL COUNT DECREASED [None]
